FAERS Safety Report 8737393 (Version 6)
Quarter: 2014Q2

REPORT INFORMATION
  Report Type: Report from Study
  Country: JP (occurrence: JP)
  Receive Date: 20120822
  Receipt Date: 20140417
  Transmission Date: 20141212
  Serious: Yes (Hospitalization)
  Sender: FDA-Public Use
  Company Number: JP-VERTEX PHARMACEUTICAL INC.-2012-019684

PATIENT
  Age: 51 Year
  Sex: Female

DRUGS (41)
  1. VX-950 (TELAPREVIR) [Suspect]
     Indication: CHRONIC HEPATITIS C
     Dosage: 1500 MG, QD
     Route: 048
     Dates: start: 20120621, end: 20120624
  2. VX-950 (TELAPREVIR) [Suspect]
     Dosage: 750 MG, QD
     Route: 048
     Dates: start: 20120625, end: 20120713
  3. VX-950 (TELAPREVIR) [Suspect]
     Dosage: 750 MG, QD
     Route: 048
     Dates: start: 20120726, end: 20120920
  4. REBETOL [Suspect]
     Indication: CHRONIC HEPATITIS C
     Dosage: 400 MG, QD
     Route: 048
     Dates: start: 20120621, end: 20120713
  5. REBETOL [Suspect]
     Dosage: 400 MG, QD
     Route: 048
     Dates: start: 20120726, end: 20120906
  6. REBETOL [Suspect]
     Dosage: 200 MG, QD
     Route: 048
     Dates: start: 20120907, end: 20121031
  7. REBETOL [Suspect]
     Dosage: 400 MG, QD
     Route: 048
     Dates: start: 20121101, end: 20121107
  8. REBETOL [Suspect]
     Dosage: 200 MG, QD
     Route: 048
     Dates: start: 20121108
  9. PEGINTERFERON ALFA-2B [Suspect]
     Indication: CHRONIC HEPATITIS C
     Dosage: 1.5 ?G/KG, QW
     Route: 058
     Dates: start: 20120621, end: 20120712
  10. PEGINTERFERON ALFA-2B [Suspect]
     Dosage: 1.5 ?G/KG, QW
     Route: 058
     Dates: start: 20120726, end: 20121101
  11. PEGINTERFERON ALFA-2B [Suspect]
     Dosage: 1.1 ?G/KG, QW
     Route: 058
     Dates: start: 20121108
  12. TAKEPRON [Suspect]
     Indication: PROPHYLAXIS
     Dosage: 15 MG, QD
     Route: 048
     Dates: start: 20120621, end: 20120720
  13. TALION [Concomitant]
     Dosage: 20 MG, QD
     Route: 048
     Dates: start: 20120621, end: 20120711
  14. TALION [Concomitant]
     Dosage: 20 MG, QD
     Route: 048
     Dates: start: 20120906
  15. LOXOPROFEN [Concomitant]
     Dosage: 180 MG, QD
     Route: 048
     Dates: start: 20120621, end: 20120723
  16. LOXOPROFEN [Concomitant]
     Dosage: 180 MG, QD
     Route: 048
     Dates: start: 20120728
  17. LOXOPROFEN [Concomitant]
     Dosage: 60 MG/ DAY, PRN
     Route: 048
     Dates: start: 20121004
  18. GASMOTIN [Concomitant]
     Dosage: 15 MG, QD
     Route: 048
     Dates: start: 20120621, end: 20120714
  19. GASMOTIN [Concomitant]
     Dosage: 15 MG, QD
     Route: 048
     Dates: start: 20120802, end: 20120823
  20. NIFLAN [Concomitant]
     Dosage: UNK, PRN
     Route: 031
     Dates: start: 20120622, end: 20120815
  21. NAUZELIN [Concomitant]
     Dosage: 10 MG/ DAY, PRN
     Route: 048
     Dates: start: 20120705
  22. GASTER D [Concomitant]
     Dosage: 40 MG, QD
     Route: 048
     Dates: start: 20120720, end: 20120723
  23. GASTER D [Concomitant]
     Dosage: 20 MG, QD
     Route: 048
     Dates: start: 20120727
  24. GASTER D [Concomitant]
     Dosage: 20 MG, QD
     Route: 048
     Dates: start: 20120802, end: 20120823
  25. GASTER D [Concomitant]
     Dosage: 20 MG, QD
     Route: 048
     Dates: start: 20121018, end: 20121031
  26. SOLU-MEDROL [Concomitant]
     Dosage: 125 MG, QD
     Route: 042
     Dates: start: 20120727, end: 20120727
  27. OMNIPAQUE [Concomitant]
     Dosage: 110 ML, QD
     Route: 042
     Dates: start: 20120727, end: 20120727
  28. BUSCOPAN [Concomitant]
     Dosage: 20 MG, QD
     Route: 030
     Dates: start: 20120730, end: 20120730
  29. LOXONIN [Concomitant]
     Dosage: 180 MG, UNK
     Route: 048
     Dates: start: 20120802, end: 20120823
  30. HYALEIN [Concomitant]
     Dosage: UNK, PRN
     Route: 047
     Dates: start: 20120816
  31. ALLELOCK OD [Concomitant]
     Dosage: 5 MG/ DAY, PRN
     Route: 048
     Dates: start: 20120906, end: 20121108
  32. MYSLEE [Concomitant]
     Dosage: 5 MG/ DAY, PRN
     Route: 048
     Dates: start: 20120906
  33. RIZE [Concomitant]
     Dosage: 5 MG/ DAY, PRN
     Route: 048
     Dates: start: 20120920
  34. RIZE [Concomitant]
     Dosage: UNK
  35. FLAVITAN [Concomitant]
     Dosage: 40 MG, QD
     Route: 048
     Dates: start: 20120920
  36. KENALOG [Concomitant]
     Dosage: UNK, PRN
     Route: 061
     Dates: start: 20120920
  37. PRIVINA [Concomitant]
     Dosage: UNK, PRN
     Route: 045
     Dates: start: 20121018
  38. VOLTAREN [Concomitant]
     Dosage: 37.5 MG, QD
     Route: 048
     Dates: start: 20121018, end: 20121031
  39. ETIZOLAM [Concomitant]
     Dosage: 0.5 MG/ DAY, PRN
     Route: 048
     Dates: start: 20121101, end: 20121128
  40. LIVOSTIN NASAL SOLUTION [Concomitant]
     Dosage: UNK, PRN
     Route: 045
     Dates: start: 20121206
  41. ENTERONON-R [Concomitant]
     Dosage: 3 G, UNK
     Route: 048
     Dates: start: 20121018, end: 20121031

REACTIONS (1)
  - Enterocolitis [Recovered/Resolved]
